FAERS Safety Report 20015859 (Version 1)
Quarter: 2021Q4

REPORT INFORMATION
  Report Type: Spontaneous
  Country: US (occurrence: None)
  Receive Date: 20211102
  Receipt Date: 20211102
  Transmission Date: 20220304
  Serious: No
  Sender: FDA-Public Use
  Company Number: None

PATIENT

DRUGS (2)
  1. HALDOL [Suspect]
     Active Substance: HALOPERIDOL
  2. HALDOL [Concomitant]
     Active Substance: HALOPERIDOL

REACTIONS (1)
  - Drug ineffective [None]
